FAERS Safety Report 13696430 (Version 1)
Quarter: 2017Q2

REPORT INFORMATION
  Report Type: Spontaneous
  Country: US (occurrence: US)
  Receive Date: 20170627
  Receipt Date: 20170627
  Transmission Date: 20170830
  Serious: Yes (Hospitalization)
  Sender: FDA-Public Use
  Company Number: None

PATIENT
  Age: 14 Year
  Sex: Male
  Weight: 91.5 kg

DRUGS (5)
  1. VINCRISTINE SULFATE. [Suspect]
     Active Substance: VINCRISTINE SULFATE
     Dates: end: 20170615
  2. DAUNORUBICIN [Suspect]
     Active Substance: DAUNORUBICIN
     Dates: end: 20170615
  3. PREDNISONE. [Suspect]
     Active Substance: PREDNISONE
     Dates: end: 20170621
  4. ONCASPAR [Suspect]
     Active Substance: PEGASPARGASE
     Dates: end: 20170618
  5. CYTARABINE. [Suspect]
     Active Substance: CYTARABINE
     Dates: end: 20170619

REACTIONS (15)
  - Heart rate decreased [None]
  - Pulmonary oedema [None]
  - Blood calcium decreased [None]
  - Oedema peripheral [None]
  - Fluid overload [None]
  - Blood phosphorus increased [None]
  - Dizziness [None]
  - Syncope [None]
  - Acute kidney injury [None]
  - Tumour lysis syndrome [None]
  - Dehydration [None]
  - Dialysis [None]
  - Weight increased [None]
  - Pleural effusion [None]
  - Atelectasis [None]

NARRATIVE: CASE EVENT DATE: 20170622
